FAERS Safety Report 8239640-0 (Version None)
Quarter: 2012Q1

REPORT INFORMATION
  Report Type: 
  Country: None (occurrence: None)
  Receive Date: 20120328
  Receipt Date: 20120321
  Transmission Date: 20120608
  Serious: Yes (Other)
  Sender: FDA-Public Use
  Company Number: US-VERTEX PHARMACEUTICALS INC.-AE-2012-000194

PATIENT
  Sex: Female

DRUGS (5)
  1. LORATADINE [Concomitant]
  2. RIBAVIRIN [Concomitant]
     Indication: HEPATITIS C
     Route: 048
  3. ATIVAN [Concomitant]
  4. PEGINTERFERON [Concomitant]
     Indication: HEPATITIS C
     Dates: start: 20111021
  5. INCIVEK [Suspect]
     Indication: HEPATITIS C
     Route: 048
     Dates: start: 20111021

REACTIONS (2)
  - LEUKOCYTOCLASTIC VASCULITIS [None]
  - ANAEMIA [None]
